FAERS Safety Report 21024328 (Version 1)
Quarter: 2022Q3

REPORT INFORMATION
  Report Type: Spontaneous
  Country: ES (occurrence: ES)
  Receive Date: 20220629
  Receipt Date: 20220629
  Transmission Date: 20221027
  Serious: Yes (Other)
  Sender: FDA-Public Use
  Company Number: None

PATIENT
  Age: 55 Year
  Sex: Female

DRUGS (4)
  1. MYFORTIC [Suspect]
     Active Substance: MYCOPHENOLATE SODIUM
     Indication: Renal transplant
     Dosage: 720 MG, Q12H (COMPRIMIDOS GASTRORRESISTENTES , 50 COMPRIMIDOS   )
     Route: 048
     Dates: start: 20210921
  2. SIMULECT [Suspect]
     Active Substance: BASILIXIMAB
     Indication: Renal transplant
     Dosage: 40 MG, QD (POLVO Y DISOLVENTE PARA SOLUCION INYECTABLE O PARA PERFUSION   DOSIS TOTAL 40MG EN 2 DOSI
     Route: 042
     Dates: start: 20210921, end: 20210924
  3. TACROLIMUS [Suspect]
     Active Substance: TACROLIMUS
     Indication: Renal transplant
     Dosage: 16 MG, QD (CAPSULAS DURAS DE LIBERACION PROLONGADA, 30 C?PSULAS )
     Route: 048
     Dates: start: 20210921
  4. METHYLPREDNISOLONE [Suspect]
     Active Substance: METHYLPREDNISOLONE
     Indication: Renal transplant
     Dosage: UNK (POLVO Y DISOLVENTE PARA SOLUCION INYECTABLE EFG , 1 VIAL + 1 AMPOLLA DE DISOLVENTE, BOLOS SEGUI
     Route: 042
     Dates: start: 20210921, end: 20210923

REACTIONS (1)
  - Hyperamylasaemia [Recovered/Resolved]

NARRATIVE: CASE EVENT DATE: 20210923
